FAERS Safety Report 8577637-1 (Version None)
Quarter: 2012Q3

REPORT INFORMATION
  Report Type: 
  Country: None (occurrence: None)
  Receive Date: 20120807
  Receipt Date: 20120727
  Transmission Date: 20120928
  Serious: Yes (Other)
  Sender: FDA-Public Use
  Company Number: US-PFIZER INC-2012085613

PATIENT
  Age: 64 Year
  Sex: Female
  Weight: 79.819 kg

DRUGS (8)
  1. INDOMETHACIN [Concomitant]
     Indication: BURSITIS
     Dosage: 75 MG, AS NEEDED
     Route: 048
     Dates: start: 20110201, end: 20120301
  2. ADVIL [Concomitant]
     Indication: BURSITIS
     Dosage: 200-400 MG, AS NEEDED
     Route: 048
     Dates: start: 20110201
  3. XARELTO [Concomitant]
     Indication: ANTICOAGULANT THERAPY
     Dosage: 20 MG, 1X/DAY
     Route: 048
     Dates: start: 20120703
  4. ATIVAN [Concomitant]
     Indication: ANXIETY
     Dosage: 1 MG, SINGLE
     Route: 048
     Dates: start: 20120331, end: 20120331
  5. DESVENLAFAXINE SUCCINATE [Suspect]
     Dosage: 50 MG, 1X/DAY
     Dates: start: 20120404, end: 20120405
  6. VICODIN [Concomitant]
     Indication: BURSITIS
     Dosage: 500/5 MG, 0-2 X/WEEK AS NEEDED
     Route: 048
     Dates: start: 20111101, end: 20120301
  7. DESVENLAFAXINE SUCCINATE [Suspect]
     Indication: MAJOR DEPRESSION
     Dosage: 50 MG, 1X/DAY
     Route: 048
     Dates: start: 20120209, end: 20120215
  8. DESVENLAFAXINE SUCCINATE [Suspect]
     Dosage: 100 MG, 1X/DAY
     Route: 048
     Dates: start: 20120216, end: 20120403

REACTIONS (1)
  - ATRIAL FIBRILLATION [None]
